FAERS Safety Report 9725462 (Version 1)
Quarter: 2013Q4

REPORT INFORMATION
  Report Type: Spontaneous
  Country: US (occurrence: None)
  Receive Date: 20131202
  Receipt Date: 20131202
  Transmission Date: 20140711
  Serious: Yes (Life-Threatening, Disabling, Other)
  Sender: FDA-Public Use
  Company Number: None

PATIENT
  Age: 53 Year
  Sex: Male
  Weight: 83.92 kg

DRUGS (1)
  1. CIPROFLOXACIN 500MG [Suspect]
     Indication: PROSTATIC DISORDER
     Dosage: 1 TABLET, TWICE DAILY, TAKEN BY MOUTH
     Route: 048

REACTIONS (1)
  - Sick sinus syndrome [None]
